FAERS Safety Report 24652550 (Version 1)
Quarter: 2024Q4

REPORT INFORMATION
  Report Type: Spontaneous
  Country: JP (occurrence: JP)
  Receive Date: 20241122
  Receipt Date: 20241122
  Transmission Date: 20250115
  Serious: Yes (Other)
  Sender: ACCORD
  Company Number: JP-Accord-456748

PATIENT
  Age: 44 Year
  Sex: Male

DRUGS (4)
  1. CARBOPLATIN [Suspect]
     Active Substance: CARBOPLATIN
     Indication: Non-small cell lung cancer stage III
     Dosage: AN AREA UNDER THE CURVE OF 6.??ON DAY 1
  2. DURVALUMAB [Suspect]
     Active Substance: DURVALUMAB
     Indication: Non-small cell lung cancer stage III
     Dosage: DAY 1
  3. TREMELIMUMAB [Suspect]
     Active Substance: TREMELIMUMAB
     Indication: Non-small cell lung cancer stage III
     Dosage: DAY 1
  4. PACLITAXEL [Suspect]
     Active Substance: PACLITAXEL
     Indication: Non-small cell lung cancer stage III
     Dosage: ON DAYS 1, 8, AND 15

REACTIONS (6)
  - Colitis [Recovered/Resolved]
  - Cytokine release syndrome [Recovered/Resolved]
  - Myocarditis [Recovered/Resolved]
  - Hepatic function abnormal [Recovered/Resolved]
  - Candida endophthalmitis [Recovered/Resolved]
  - Cytomegalovirus infection [Recovered/Resolved]
